FAERS Safety Report 8731651 (Version 2)
Quarter: 2012Q4

REPORT INFORMATION
  Report Type: 
  Country: FR (occurrence: FR)
  Receive Date: 20120820
  Receipt Date: 20120911
  Transmission Date: 20130627
  Serious: Yes (Hospitalization)
  Sender: FDA-Public Use
  Company Number: FR-NOVOPROD-357903

PATIENT
  Age: 77 Year
  Sex: Male

DRUGS (14)
  1. NOVOSEVEN [Suspect]
     Indication: PRODUCT USED FOR UNKNOWN INDICATION
     Dosage: 5 mg, qd
     Route: 042
  2. NOVOSEVEN [Suspect]
     Dosage: 5 mg, qd
     Route: 042
  3. NOVOSEVEN [Suspect]
     Dosage: 1 mg, qd
  4. NOVOSEVEN [Suspect]
     Dosage: 2 MG/IV
  5. KARDEGIC [Concomitant]
     Dosage: 75 mg, qd
     Route: 048
  6. CRESTOR [Concomitant]
     Dosage: 5 mg, qd
     Route: 048
     Dates: start: 20120725
  7. INEXIUM /01479302/ [Concomitant]
     Dosage: 20 mg, qd
     Route: 048
     Dates: start: 20120725
  8. LOXEN [Concomitant]
     Dosage: IV
     Route: 042
     Dates: start: 20120725, end: 20120727
  9. STAGID [Concomitant]
     Dosage: 700 mg, qd
     Route: 048
     Dates: start: 20120725
  10. CORTANCYL [Concomitant]
  11. CHONDROSULF [Concomitant]
  12. FENOFIBRATE BIOGARAN [Concomitant]
     Dosage: 145 mg, qd
     Route: 048
  13. LOVENOX [Concomitant]
     Indication: PROPHYLAXIS
  14. WILFACTIN [Concomitant]

REACTIONS (2)
  - Sensorimotor disorder [Not Recovered/Not Resolved]
  - Ischaemic stroke [Not Recovered/Not Resolved]
